FAERS Safety Report 10290724 (Version 1)
Quarter: 2014Q3

REPORT INFORMATION
  Report Type: Spontaneous
  Country: US (occurrence: None)
  Receive Date: 20140708
  Receipt Date: 20140708
  Transmission Date: 20150326
  Serious: Yes (Disabling)
  Sender: FDA-Public Use
  Company Number: None

PATIENT
  Age: 69 Year
  Sex: Female
  Weight: 44.45 kg

DRUGS (2)
  1. CIPROFLOXACIN. [Suspect]
     Active Substance: CIPROFLOXACIN
     Indication: URINARY TRACT INFECTION
     Dosage: 1 PILL  TWICE DAILY TAKEN BY MOUTH?
     Route: 048
     Dates: start: 20121219, end: 20121225
  2. CIPROFLOXACIN. [Suspect]
     Active Substance: CIPROFLOXACIN
     Indication: CYSTITIS
     Dosage: 1 PILL  TWICE DAILY TAKEN BY MOUTH?
     Route: 048
     Dates: start: 20121219, end: 20121225

REACTIONS (5)
  - Cystitis interstitial [None]
  - Aphagia [None]
  - Weight decreased [None]
  - Bladder pain [None]
  - Abdominal discomfort [None]

NARRATIVE: CASE EVENT DATE: 20121229
